FAERS Safety Report 7035809-1 (Version None)
Quarter: 2010Q4

REPORT INFORMATION
  Report Type: 
  Country: None (occurrence: None)
  Receive Date: 20101008
  Receipt Date: 20100924
  Transmission Date: 20110411
  Serious: Yes (Death)
  Sender: FDA-Public Use
  Company Number: US-ENDO PHARMACEUTICALS INC.-MSER20100023

PATIENT
  Sex: Female

DRUGS (8)
  1. MORPHINE SULFATE ER 15MG [Suspect]
     Indication: PAIN
     Dosage: 15 MG
  2. HYDROCODONE [Interacting]
     Indication: PAIN
     Dosage: UNK
  3. METHADONE [Interacting]
     Indication: PAIN
     Dosage: UNK
  4. DIAZEPAM [Interacting]
     Indication: PAIN
     Dosage: UNK
  5. LYRICA [Interacting]
     Indication: PAIN
     Dosage: UNK
  6. VICODIN [Interacting]
     Indication: PAIN
     Dosage: UNK
  7. HYDROMORPHONE HCL [Interacting]
     Indication: PAIN
     Dosage: UNK
  8. CYCLOBENZAPRINE [Interacting]
     Indication: PAIN
     Dosage: UNK

REACTIONS (12)
  - ANXIETY [None]
  - DELUSION [None]
  - DISORIENTATION [None]
  - DRUG INEFFECTIVE [None]
  - DRUG INTERACTION [None]
  - FALL [None]
  - HALLUCINATION [None]
  - MULTIPLE DRUG OVERDOSE [None]
  - PARANOIA [None]
  - SEDATION [None]
  - SOCIAL AVOIDANT BEHAVIOUR [None]
  - SOMNAMBULISM [None]
